FAERS Safety Report 17226105 (Version 9)
Quarter: 2020Q3

REPORT INFORMATION
  Report Type: Report from Study
  Country: US (occurrence: US)
  Receive Date: 20200102
  Receipt Date: 20200804
  Transmission Date: 20201102
  Serious: Yes (Other)
  Sender: FDA-Public Use
  Company Number: NVSC2019US083865

PATIENT
  Age: 87 Year
  Sex: Female

DRUGS (6)
  1. BEOVU [Suspect]
     Active Substance: BROLUCIZUMAB-DBLL
     Dosage: UNK
     Route: 047
  2. BEOVU [Suspect]
     Active Substance: BROLUCIZUMAB-DBLL
     Indication: NEOVASCULAR AGE-RELATED MACULAR DEGENERATION
     Dosage: UNK UNK, Q5W
     Route: 047
     Dates: start: 20191120
  3. BEOVU [Suspect]
     Active Substance: BROLUCIZUMAB-DBLL
     Dosage: EVERY 6 WEEKS
     Route: 047
  4. BEOVU [Suspect]
     Active Substance: BROLUCIZUMAB-DBLL
     Dosage: EVERY 5 WEEKS
     Route: 047
  5. BEOVU [Suspect]
     Active Substance: BROLUCIZUMAB-DBLL
     Dosage: EVERY 8 WEEKS
     Route: 047
  6. BEOVU [Suspect]
     Active Substance: BROLUCIZUMAB-DBLL
     Dosage: EVERY 4 WEEKS
     Route: 047

REACTIONS (8)
  - Macular fibrosis [Not Recovered/Not Resolved]
  - Eye pruritus [Unknown]
  - Neovascular age-related macular degeneration [Unknown]
  - Urticaria [Unknown]
  - Nervousness [Unknown]
  - Lacrimation increased [Not Recovered/Not Resolved]
  - Cataract [Unknown]
  - Pruritus [Not Recovered/Not Resolved]

NARRATIVE: CASE EVENT DATE: 20191121
